FAERS Safety Report 6000308-2 (Version None)
Quarter: 2008Q4

REPORT INFORMATION
  Report Type: 
  Country: None (occurrence: None)
  Receive Date: 20081215
  Receipt Date: 20081201
  Transmission Date: 20090506
  Serious: Yes (Other)
  Sender: FDA-Public Use
  Company Number: US-ROCHE-600267

PATIENT
  Age: 1 Month
  Sex: Male

DRUGS (9)
  1. MYCOPHENOLATE MOFETIL [Suspect]
     Indication: PROPHYLAXIS AGAINST GRAFT VERSUS HOST DISEASE
     Route: 048
  2. MYCOPHENOLATE MOFETIL [Suspect]
     Route: 048
  3. CYCLOSPORINE [Suspect]
     Indication: PROPHYLAXIS AGAINST GRAFT VERSUS HOST DISEASE
     Route: 042
  4. BUSULFAN [Concomitant]
     Route: 042
  5. CYCLOPHOSPHAMIDE [Concomitant]
     Route: 042
  6. ATGAM [Concomitant]
  7. FLUDARABINE PHOSPHATE [Concomitant]
  8. METHOTREXATE [Concomitant]
     Dosage: 15 MG/M2 ON DAY 1 AND 10 MG/M2 ON DAYS 3, 6 AND 11
     Route: 042
  9. NEUPOGEN [Concomitant]

REACTIONS (1)
  - GRAFT VERSUS HOST DISEASE [None]
